FAERS Safety Report 15339715 (Version 1)
Quarter: 2018Q3

REPORT INFORMATION
  Report Type: Spontaneous
  Country: CA (occurrence: CA)
  Receive Date: 20180831
  Receipt Date: 20180831
  Transmission Date: 20181010
  Serious: Yes (Other)
  Sender: FDA-Public Use
  Company Number: CA-PFIZER INC-2018315015

PATIENT
  Age: 57 Year
  Sex: Female

DRUGS (7)
  1. AZATHIOPRINE. [Suspect]
     Active Substance: AZATHIOPRINE
     Dosage: UNK
  2. ACTEMRA [Suspect]
     Active Substance: TOCILIZUMAB
     Dosage: 162 MG, WEEKLY
     Route: 058
  3. ORENCIA [Suspect]
     Active Substance: ABATACEPT
     Dosage: 125 MG, WEEKLY
     Route: 058
  4. METHOTREXATE SODIUM. [Suspect]
     Active Substance: METHOTREXATE SODIUM
     Indication: RHEUMATOID ARTHRITIS
     Dosage: 25 MG, WEEKLY
     Route: 058
  5. SULFASALAZINE. [Suspect]
     Active Substance: SULFASALAZINE
     Dosage: UNK
  6. TYLENOL ARTHRITIS PAIN [Concomitant]
     Active Substance: ACETAMINOPHEN
     Dosage: UNK
  7. HYDROXYCHLOROQUINE [Suspect]
     Active Substance: HYDROXYCHLOROQUINE
     Dosage: UNK

REACTIONS (3)
  - Spinal compression fracture [Unknown]
  - Drug ineffective [Unknown]
  - Osteoporotic fracture [Unknown]

NARRATIVE: CASE EVENT DATE: 2015
